FAERS Safety Report 4337259-5 (Version None)
Quarter: 2004Q2

REPORT INFORMATION
  Report Type: 
  Country: None (occurrence: None)
  Receive Date: 20040413
  Receipt Date: 20040405
  Transmission Date: 20050107
  Serious: Yes (Other)
  Sender: FDA-Public Use
  Company Number: PHFR2004GB01660

PATIENT
  Age: 69 Year
  Sex: Female

DRUGS (3)
  1. FLUVASTATIN SODIUM [Suspect]
     Indication: HYPERCHOLESTEROLAEMIA
     Dosage: 20MG/DAY
     Route: 048
     Dates: start: 20030109, end: 20040213
  2. DOTHIEPIN HYDROCHLORIDE [Concomitant]
     Indication: DEPRESSION
     Dosage: 25MG NOCTE/DAY
     Route: 048
     Dates: start: 19950901
  3. ASPIRIN [Concomitant]
     Indication: DEMENTIA
     Dosage: 75MG/DAY
     Route: 048
     Dates: start: 19981001

REACTIONS (2)
  - AMNESIA [None]
  - SPEECH DISORDER [None]
